FAERS Safety Report 9679975 (Version 3)
Quarter: 2014Q3

REPORT INFORMATION
  Report Type: Report from Study
  Country: US (occurrence: US)
  Receive Date: 20131110
  Receipt Date: 20140722
  Transmission Date: 20150326
  Serious: Yes (Other)
  Sender: FDA-Public Use
  Company Number: PHEH2013US013720

PATIENT
  Age: 40 Year
  Sex: Male

DRUGS (11)
  1. IBUPROFEN. [Concomitant]
     Active Substance: IBUPROFEN
  2. VITAMIN D [Concomitant]
     Active Substance: CHOLECALCIFEROL
  3. SOMA [Concomitant]
     Active Substance: CARISOPRODOL
  4. AMITRIPTYLINE [Concomitant]
     Active Substance: AMITRIPTYLINE
  5. NORCO [Concomitant]
     Active Substance: ACETAMINOPHEN\HYDROCODONE BITARTRATE
  6. GILENYA [Suspect]
     Active Substance: FINGOLIMOD HYDROCHLORIDE
     Indication: MULTIPLE SCLEROSIS
     Dosage: 0.5 MG, QD
     Route: 048
     Dates: start: 20130525
  7. BACLOFEN. [Concomitant]
     Active Substance: BACLOFEN
  8. CITALOPRAM [Concomitant]
     Active Substance: CITALOPRAM HYDROBROMIDE
  9. MIRALAX [Concomitant]
     Active Substance: POLYETHYLENE GLYCOL 3350
  10. TIZANIDINE [Concomitant]
     Active Substance: TIZANIDINE
  11. LIDOCAINE. [Concomitant]
     Active Substance: LIDOCAINE

REACTIONS (4)
  - Abdominal pain lower [Not Recovered/Not Resolved]
  - Confusional state [Recovered/Resolved]
  - Nephrolithiasis [Unknown]
  - Discomfort [Not Recovered/Not Resolved]

NARRATIVE: CASE EVENT DATE: 20130614
